FAERS Safety Report 13858367 (Version 2)
Quarter: 2017Q3

REPORT INFORMATION
  Report Type: Spontaneous
  Country: US (occurrence: US)
  Receive Date: 20170811
  Receipt Date: 20170925
  Transmission Date: 20171127
  Serious: Yes (Other)
  Sender: FDA-Public Use
  Company Number: US-PFIZER INC-2017340608

PATIENT
  Age: 77 Year
  Sex: Male
  Weight: 92 kg

DRUGS (7)
  1. TAMOXIFEN [Concomitant]
     Active Substance: TAMOXIFEN
     Indication: THROMBOSIS
     Dosage: 10 MG, DAILY (10MG, TAKES ONE A DAY)
     Route: 048
  2. REVATIO [Suspect]
     Active Substance: SILDENAFIL CITRATE
     Indication: PULMONARY HYPERTENSION
     Dosage: 20 MG, 3X/DAY (20MG TABLETS, TAKES ONE TABLET BY MOUTH 3 TIMES A DAY)
     Route: 048
     Dates: start: 201607
  3. SYMBICORT [Concomitant]
     Active Substance: BUDESONIDE\FORMOTEROL FUMARATE DIHYDRATE
     Indication: EMPHYSEMA
     Dosage: UNK
  4. FUROSEMIDE. [Concomitant]
     Active Substance: FUROSEMIDE
     Indication: FLUID RETENTION
     Dosage: 40MG, TABLETS, TWICE A DAY
  5. PANTOPRAZOLE SODIUM. [Concomitant]
     Active Substance: PANTOPRAZOLE SODIUM
     Indication: DYSPEPSIA
     Dosage: 40MG, ONCE A DAY
     Route: 048
  6. CARTIA XT [Concomitant]
     Active Substance: DILTIAZEM HYDROCHLORIDE
     Indication: HYPERTENSION
     Dosage: 300MG CAPSULES, ONCE A DAY
  7. TRAMADOL. [Concomitant]
     Active Substance: TRAMADOL
     Indication: BACK PAIN
     Dosage: 50 MG, AS NEEDED

REACTIONS (2)
  - Haemorrhage [Recovering/Resolving]
  - Arteriovenous malformation [Unknown]

NARRATIVE: CASE EVENT DATE: 201607
